FAERS Safety Report 10035777 (Version 2)
Quarter: 2014Q2

REPORT INFORMATION
  Report Type: Report from Study
  Country: JP (occurrence: JP)
  Receive Date: 20140325
  Receipt Date: 20140529
  Transmission Date: 20141212
  Serious: Yes (Other)
  Sender: FDA-Public Use
  Company Number: JP-GLAXOSMITHKLINE-B0978414A

PATIENT
  Age: 56 Year
  Sex: Female

DRUGS (3)
  1. VOTRIENT 200MG [Suspect]
     Indication: MALIGNANT MELANOMA
     Dosage: 800MG PER DAY
     Route: 048
     Dates: start: 20130530, end: 20130923
  2. DOXORUBICIN HYDROCHLORIDE [Suspect]
     Route: 042
  3. LANSOPRAZOLE [Concomitant]
     Indication: PROPHYLAXIS AGAINST GASTROINTESTINAL ULCER
     Route: 065

REACTIONS (6)
  - Cholangitis [Recovered/Resolved]
  - Hypertension [Recovered/Resolved]
  - Hepatic function abnormal [Recovered/Resolved]
  - Diarrhoea [Recovered/Resolved]
  - Nausea [Recovered/Resolved]
  - Protein urine [Unknown]
